FAERS Safety Report 10182293 (Version 1)
Quarter: 2014Q2

REPORT INFORMATION
  Report Type: Spontaneous
  Country: US (occurrence: US)
  Receive Date: 20140520
  Receipt Date: 20140520
  Transmission Date: 20141212
  Serious: Yes (Death)
  Sender: FDA-Public Use
  Company Number: US-BRISTOL-MYERS SQUIBB COMPANY-20728747

PATIENT
  Sex: Female

DRUGS (2)
  1. BYETTA [Suspect]
     Indication: TYPE 2 DIABETES MELLITUS
     Dates: start: 20050906, end: 201003
  2. JANUVIA [Suspect]
     Indication: TYPE 2 DIABETES MELLITUS
     Dates: start: 20090330, end: 201001

REACTIONS (1)
  - Pancreatic carcinoma [Fatal]
